FAERS Safety Report 10010306 (Version 30)
Quarter: 2015Q2

REPORT INFORMATION
  Report Type: Report from Study
  Country: CA (occurrence: CA)
  Receive Date: 20140314
  Receipt Date: 20150617
  Transmission Date: 20150821
  Serious: Yes (Death, Life-Threatening, Hospitalization, Other)
  Sender: FDA-Public Use
  Company Number: CA-ROCHE-1361200

PATIENT
  Age: 47 Year
  Sex: Female
  Weight: 111.5 kg

DRUGS (20)
  1. TAXOTERE [Suspect]
     Active Substance: DOCETAXEL
     Indication: BREAST CANCER
     Route: 042
     Dates: start: 2010, end: 2011
  2. DOXORUBICIN [Suspect]
     Active Substance: DOXORUBICIN
     Indication: BREAST CANCER
     Route: 042
     Dates: start: 2010
  3. SYNTHROID [Concomitant]
     Active Substance: LEVOTHYROXINE SODIUM
  4. KADCYLA [Suspect]
     Active Substance: ADO-TRASTUZUMAB EMTANSINE
     Route: 042
     Dates: start: 20140815, end: 20140909
  5. HERCEPTIN [Suspect]
     Active Substance: TRASTUZUMAB
     Indication: BREAST CANCER METASTATIC
     Route: 042
     Dates: start: 2010
  6. KADCYLA [Suspect]
     Active Substance: ADO-TRASTUZUMAB EMTANSINE
     Indication: HER-2 POSITIVE BREAST CANCER
     Dosage: TOTAL  DOSE 540  MG
     Route: 042
     Dates: start: 20140320
  7. KADCYLA [Suspect]
     Active Substance: ADO-TRASTUZUMAB EMTANSINE
     Route: 042
     Dates: start: 20140522
  8. TAMOXIFEN [Suspect]
     Active Substance: TAMOXIFEN
     Indication: BREAST CANCER
     Route: 048
     Dates: start: 2011, end: 201310
  9. CYCLOPHOSPHAMIDE. [Suspect]
     Active Substance: CYCLOPHOSPHAMIDE
     Indication: BREAST CANCER
     Route: 042
     Dates: start: 2010
  10. KEPPRA [Concomitant]
     Active Substance: LEVETIRACETAM
  11. GABAPENTIN. [Concomitant]
     Active Substance: GABAPENTIN
  12. HERCEPTIN [Suspect]
     Active Substance: TRASTUZUMAB
     Dosage: DOSE 6/KG
     Route: 042
     Dates: start: 201310, end: 201403
  13. HERCEPTIN [Suspect]
     Active Substance: TRASTUZUMAB
     Route: 042
     Dates: start: 20140102, end: 20140316
  14. KADCYLA [Suspect]
     Active Substance: ADO-TRASTUZUMAB EMTANSINE
     Route: 042
     Dates: start: 20150113
  15. KADCYLA [Suspect]
     Active Substance: ADO-TRASTUZUMAB EMTANSINE
     Route: 042
     Dates: start: 20150415
  16. DECADRON [Concomitant]
     Active Substance: DEXAMETHASONE
     Route: 065
  17. HYDROMORPHONE [Concomitant]
     Active Substance: HYDROMORPHONE
  18. KADCYLA [Suspect]
     Active Substance: ADO-TRASTUZUMAB EMTANSINE
     Route: 042
     Dates: start: 20141002
  19. KADCYLA [Suspect]
     Active Substance: ADO-TRASTUZUMAB EMTANSINE
     Route: 042
     Dates: start: 20141222
  20. KADCYLA [Suspect]
     Active Substance: ADO-TRASTUZUMAB EMTANSINE
     Route: 042
     Dates: start: 20150225

REACTIONS (52)
  - Malaise [Unknown]
  - Mental disorder [Unknown]
  - General physical health deterioration [Unknown]
  - Anaemia [Unknown]
  - Delirium [Unknown]
  - Cerebral haemorrhage [Unknown]
  - Eastern Cooperative Oncology Group performance status worsened [Unknown]
  - Infusion related reaction [Recovered/Resolved]
  - Hydrocephalus [Unknown]
  - Pain [Unknown]
  - Asthenia [Unknown]
  - Blood phosphorus decreased [Not Recovered/Not Resolved]
  - Muscular weakness [Unknown]
  - Arteriovenous malformation [Unknown]
  - Nasopharyngitis [Recovering/Resolving]
  - Cough [Unknown]
  - Nasal dryness [Unknown]
  - Left ventricular dysfunction [Unknown]
  - Radiation necrosis [Unknown]
  - Cerebral haematoma [Unknown]
  - Pneumonia [Unknown]
  - Brain abscess [Fatal]
  - Hyponatraemia [Unknown]
  - Hypotension [Unknown]
  - Gastric infection [Recovered/Resolved]
  - Central nervous system infection [Unknown]
  - Blood potassium abnormal [Recovering/Resolving]
  - Platelet count decreased [Not Recovered/Not Resolved]
  - Performance status decreased [Unknown]
  - Decreased appetite [Unknown]
  - Headache [Not Recovered/Not Resolved]
  - Obesity [Unknown]
  - Depressed level of consciousness [Fatal]
  - Fall [Unknown]
  - Dilatation ventricular [Unknown]
  - Depressed level of consciousness [Unknown]
  - Influenza like illness [Unknown]
  - Ventricular hypokinesia [Unknown]
  - Weight decreased [Not Recovered/Not Resolved]
  - Clostridium difficile infection [Unknown]
  - Cystitis [Unknown]
  - Brain abscess [Unknown]
  - Heart rate increased [Unknown]
  - Influenza [Not Recovered/Not Resolved]
  - Malignant neoplasm progression [Not Recovered/Not Resolved]
  - Constipation [Unknown]
  - Infusion related reaction [Unknown]
  - Anorectal disorder [Unknown]
  - Coagulopathy [Unknown]
  - Klebsiella infection [Unknown]
  - Seizure [Unknown]
  - Paraesthesia [Not Recovered/Not Resolved]

NARRATIVE: CASE EVENT DATE: 20140309
